FAERS Safety Report 6355808-2 (Version None)
Quarter: 2009Q3

REPORT INFORMATION
  Report Type: 
  Country: None (occurrence: None)
  Receive Date: 20090915
  Receipt Date: 20070726
  Transmission Date: 20100115
  Serious: Yes (Hospitalization, Other)
  Sender: FDA-Public Use
  Company Number: US-ASTRAZENECA-2007UW02074

PATIENT
  Age: 7509 Day
  Sex: Female
  Weight: 99.8 kg

DRUGS (18)
  1. SEROQUEL [Suspect]
     Indication: SCHIZOPHRENIA
     Dosage: 100 MG - 500 MG
     Route: 048
     Dates: start: 20010701, end: 20060301
  2. SEROQUEL [Suspect]
     Route: 048
     Dates: start: 20010724
  3. SEROQUEL [Suspect]
     Dosage: 100 MG ONE TABLET IN MORNING AND FOUR AT NIGHT
     Route: 048
     Dates: start: 20040504
  4. RISPERDAL [Concomitant]
     Route: 048
     Dates: start: 20000101
  5. DILANTIN [Concomitant]
     Dosage: 100 MG-300 MG
     Dates: start: 20010724
  6. REMERON [Concomitant]
     Dates: start: 20010724
  7. ZOLOFT [Concomitant]
     Dosage: 50 MG-100 MG
     Dates: start: 20010724
  8. CELEBREX [Concomitant]
     Dates: start: 20010724
  9. NEXIUM [Concomitant]
     Route: 048
     Dates: start: 20020117
  10. EFFEXOR [Concomitant]
     Dosage: 150 MG-300 MG
     Dates: start: 20030824
  11. LISINOPRIL [Concomitant]
     Dates: start: 20060306
  12. HYDROCHLOROTHIAZIDE [Concomitant]
     Dates: start: 20040504
  13. TOPAMAX [Concomitant]
     Dosage: 25 MG-50 MG
     Dates: start: 20031119
  14. TRILEPTAL [Concomitant]
     Indication: EPILEPSY
     Dates: start: 20030824
  15. TRILEPTAL [Concomitant]
     Route: 048
     Dates: start: 20060101
  16. ZANTAC [Concomitant]
     Dosage: 150 MG-300 MG
     Route: 048
     Dates: start: 20040504
  17. PROVIGIL [Concomitant]
     Dates: start: 20040504
  18. GLUCOPHAGE [Concomitant]
     Dosage: 500 MG HALF TABLET DAILY
     Dates: start: 20060306

REACTIONS (25)
  - ABDOMINAL DISCOMFORT [None]
  - ABDOMINAL PAIN [None]
  - BACK PAIN [None]
  - CHEST PAIN [None]
  - CONVULSION [None]
  - DEHYDRATION [None]
  - DIABETES MELLITUS INADEQUATE CONTROL [None]
  - DRUG EXPOSURE DURING PREGNANCY [None]
  - DYSPNOEA [None]
  - DYSURIA [None]
  - EYE IRRITATION [None]
  - HYPOGLYCAEMIA [None]
  - MENTAL STATUS CHANGES [None]
  - NAUSEA [None]
  - OEDEMA PERIPHERAL [None]
  - PAIN [None]
  - PAIN IN EXTREMITY [None]
  - PELVIC PAIN [None]
  - POLYCYSTIC OVARIES [None]
  - PREMATURE LABOUR [None]
  - PYREXIA [None]
  - SLEEP DISORDER [None]
  - TYPE 2 DIABETES MELLITUS [None]
  - VAGINAL HAEMORRHAGE [None]
  - VOMITING [None]
